FAERS Safety Report 8369259-2 (Version None)
Quarter: 2012Q2

REPORT INFORMATION
  Report Type: 
  Country: None (occurrence: None)
  Receive Date: 20120517
  Receipt Date: 20120517
  Transmission Date: 20120825
  Serious: Yes (Hospitalization)
  Sender: FDA-Public Use
  Company Number: None

PATIENT
  Age: 85 Year
  Sex: Male

DRUGS (9)
  1. CITALOPRAM HYDROBROMIDE [Concomitant]
  2. PROCRIT [Concomitant]
  3. LEVOTHROID [Concomitant]
  4. LOSARTAN POTASSIUM [Concomitant]
  5. REVLIMID [Suspect]
     Indication: MYELODYSPLASTIC SYNDROME
     Dosage: REVLIMID 10 MG DAILY ORALLY
     Route: 048
     Dates: start: 20120301
  6. PRAVASTATIN [Concomitant]
  7. GABAPENTIN [Concomitant]
  8. WARFARIN SODIUM [Concomitant]
  9. METOPROLOL TARTRATE [Concomitant]

REACTIONS (3)
  - HEADACHE [None]
  - FEBRILE NEUTROPENIA [None]
  - PANCYTOPENIA [None]
